FAERS Safety Report 11753271 (Version 1)
Quarter: 2015Q4

REPORT INFORMATION
  Report Type: Spontaneous
  Country: GB (occurrence: GB)
  Receive Date: 20151119
  Receipt Date: 20151119
  Transmission Date: 20160304
  Serious: Yes (Disabling)
  Sender: FDA-Public Use
  Company Number: GB-TEVA-608109ACC

PATIENT
  Age: 57 Year
  Sex: Female

DRUGS (1)
  1. AMITRIPTYLINE [Suspect]
     Active Substance: AMITRIPTYLINE
     Indication: NEURALGIA
     Dosage: 10-30MG AT NIGHT
     Route: 048
     Dates: start: 20150108, end: 20150210

REACTIONS (3)
  - Dry eye [Not Recovered/Not Resolved]
  - Ulcerative keratitis [Not Recovered/Not Resolved]
  - Visual acuity reduced [Unknown]

NARRATIVE: CASE EVENT DATE: 20150130
